FAERS Safety Report 19497180 (Version 1)
Quarter: 2021Q3

REPORT INFORMATION
  Report Type: Spontaneous
  Country: CA (occurrence: CA)
  Receive Date: 20210706
  Receipt Date: 20210706
  Transmission Date: 20211014
  Serious: Yes (Other)
  Sender: FDA-Public Use
  Company Number: CA-ROCHE-2861663

PATIENT
  Age: 56 Year
  Sex: Female

DRUGS (11)
  1. TYLENOL [Suspect]
     Active Substance: ACETAMINOPHEN
     Indication: PRODUCT USED FOR UNKNOWN INDICATION
     Route: 065
  2. CALCIUM CARBONATE. [Concomitant]
     Active Substance: CALCIUM CARBONATE
  3. ARAVA [Concomitant]
     Active Substance: LEFLUNOMIDE
     Route: 065
  4. CLARITINE [Concomitant]
     Active Substance: LORATADINE
     Route: 065
  5. PREVACID [Concomitant]
     Active Substance: LANSOPRAZOLE
  6. RITUXIMAB. [Suspect]
     Active Substance: RITUXIMAB
     Indication: RHEUMATOID ARTHRITIS
     Route: 042
  7. ADVIL [Concomitant]
     Active Substance: IBUPROFEN
  8. PERINDOPRIL ERBUMINE. [Concomitant]
     Active Substance: PERINDOPRIL ERBUMINE
     Route: 065
  9. METHOTREXATE. [Suspect]
     Active Substance: METHOTREXATE
     Indication: PRODUCT USED FOR UNKNOWN INDICATION
     Route: 065
  10. HYDROCHLOROTHIAZIDE. [Concomitant]
     Active Substance: HYDROCHLOROTHIAZIDE
     Route: 065
  11. PEPTO?BISMOL [Concomitant]
     Active Substance: BISMUTH SUBSALICYLATE

REACTIONS (10)
  - Cataract [Not Recovered/Not Resolved]
  - Chest pain [Not Recovered/Not Resolved]
  - Dyspnoea [Not Recovered/Not Resolved]
  - Abdominal discomfort [Not Recovered/Not Resolved]
  - Eye swelling [Not Recovered/Not Resolved]
  - Rheumatoid arthritis [Not Recovered/Not Resolved]
  - Abdominal pain [Not Recovered/Not Resolved]
  - Bone density decreased [Not Recovered/Not Resolved]
  - Vomiting [Not Recovered/Not Resolved]
  - Therapeutic response shortened [Not Recovered/Not Resolved]
